FAERS Safety Report 16893633 (Version 1)
Quarter: 2019Q4

REPORT INFORMATION
  Report Type: Spontaneous
  Country: GB (occurrence: GB)
  Receive Date: 20191008
  Receipt Date: 20191008
  Transmission Date: 20200122
  Serious: Yes (Hospitalization)
  Sender: FDA-Public Use
  Company Number: GB-MYLANLABS-2019M1092408

PATIENT
  Age: 45 Year
  Sex: Female
  Weight: 82.15 kg

DRUGS (14)
  1. DICLOFENAC [Concomitant]
     Active Substance: DICLOFENAC
  2. THIAMINE. [Concomitant]
     Active Substance: THIAMINE
  3. CHLORDIAZEPOXIDE. [Concomitant]
     Active Substance: CHLORDIAZEPOXIDE
  4. PHYTOMENADIONE [Concomitant]
     Active Substance: PHYTONADIONE
  5. PROCHLORPERAZINE. [Concomitant]
     Active Substance: PROCHLORPERAZINE
  6. SERTRALINE [Suspect]
     Active Substance: SERTRALINE HYDROCHLORIDE
     Indication: DEPRESSION
     Dosage: IN THE MORNING
     Route: 048
     Dates: start: 20180901, end: 20190507
  7. TRAZODONE [Concomitant]
     Active Substance: TRAZODONE HYDROCHLORIDE
  8. PROPRANOLOL [Concomitant]
     Active Substance: PROPRANOLOL HYDROCHLORIDE
  9. SALBUTAMOL [Concomitant]
     Active Substance: ALBUTEROL
  10. OXYCODONE [Concomitant]
     Active Substance: OXYCODONE
  11. COLECALCIFEROL [Concomitant]
     Active Substance: CHOLECALCIFEROL
  12. PABRINEX                           /01800301/ [Concomitant]
  13. BACLOFEN. [Concomitant]
     Active Substance: BACLOFEN
  14. OMEPRAZOLE. [Concomitant]
     Active Substance: OMEPRAZOLE

REACTIONS (4)
  - Withdrawal syndrome [Unknown]
  - Alcohol withdrawal syndrome [Unknown]
  - Electrocardiogram QT prolonged [Recovering/Resolving]
  - Hallucination, auditory [Unknown]

NARRATIVE: CASE EVENT DATE: 20190506
